FAERS Safety Report 6298621-7 (Version None)
Quarter: 2009Q3

REPORT INFORMATION
  Report Type: 
  Country: None (occurrence: None)
  Receive Date: 20090803
  Receipt Date: 20090716
  Transmission Date: 20100115
  Serious: Yes (Life-Threatening, Hospitalization, Disabling)
  Sender: FDA-Public Use
  Company Number: 1419181-2009-0003

PATIENT
  Sex: Female

DRUGS (3)
  1. 2% CHLORHEXIDINE GLUCONATE CLOTHS (9705) SAGE PRODUCTS INC. [Suspect]
     Indication: MEDICAL DEVICE IMPLANTATION
     Dosage: TOPICAL
     Route: 061
     Dates: start: 20080715
  2. 2% CHLORHEXIDINE GLUCONATE CLOTHS (9705) SAGE PRODUCTS INC. [Suspect]
     Indication: POSTOPERATIVE CARE
     Dosage: TOPICAL
     Route: 061
     Dates: start: 20080715
  3. LEFT VENTRICULAR ASSIST DEVICE [Concomitant]

REACTIONS (4)
  - BURKHOLDERIA CEPACIA COMPLEX INFECTION [None]
  - INJURY [None]
  - POST PROCEDURAL COMPLICATION [None]
  - PRODUCT CONTAMINATION MICROBIAL [None]
